FAERS Safety Report 25899019 (Version 2)
Quarter: 2025Q4

REPORT INFORMATION
  Report Type: Report from Study
  Country: US (occurrence: US)
  Receive Date: 20251009
  Receipt Date: 20251202
  Transmission Date: 20260118
  Serious: Yes (Hospitalization)
  Sender: ALEXION PHARMACEUTICALS
  Company Number: US-AstraZeneca-CH-00965992A

PATIENT
  Sex: Female

DRUGS (1)
  1. STRENSIQ [Suspect]
     Active Substance: ASFOTASE ALFA
     Indication: Hypophosphatasia
     Dosage: 110 MILLIGRAM, TIW
     Dates: start: 20241011

REACTIONS (2)
  - Uterine leiomyoma [Not Recovered/Not Resolved]
  - Inflammation [Not Recovered/Not Resolved]
